FAERS Safety Report 5464385-X (Version None)
Quarter: 2007Q3

REPORT INFORMATION
  Report Type: 
  Country: None (occurrence: None)
  Receive Date: 20070921
  Receipt Date: 20070912
  Transmission Date: 20080115
  Serious: Yes (Disabling)
  Sender: FDA-Public Use
  Company Number: US-MERCK-0709USA01594

PATIENT
  Age: 41 Year
  Sex: Female

DRUGS (1)
  1. ZOCOR [Suspect]
     Indication: BLOOD CHOLESTEROL INCREASED
     Route: 048
     Dates: start: 20030501, end: 20050701

REACTIONS (3)
  - GLOBAL AMNESIA [None]
  - MUSCLE FATIGUE [None]
  - MUSCULAR WEAKNESS [None]
